FAERS Safety Report 5168173-3 (Version None)
Quarter: 2006Q4

REPORT INFORMATION
  Report Type: 
  Country: None (occurrence: None)
  Receive Date: 20061208
  Receipt Date: 20061130
  Transmission Date: 20070319
  Serious: Yes (Hospitalization)
  Sender: FDA-Public Use
  Company Number: 2006AC02256

PATIENT
  Age: 35 Year
  Sex: Female

DRUGS (1)
  1. TAMOXIFEN CITRATE [Suspect]
     Indication: BREAST CANCER IN SITU
     Route: 048

REACTIONS (3)
  - OVARIAN CYST [None]
  - OVARIAN CYST TORSION [None]
  - OVARIAN HYPERSTIMULATION SYNDROME [None]
